FAERS Safety Report 7118446-X (Version None)
Quarter: 2010Q4

REPORT INFORMATION
  Report Type: 
  Country: None (occurrence: None)
  Receive Date: 20101027
  Receipt Date: 20100817
  Transmission Date: 20110411
  Serious: Yes (Other)
  Sender: FDA-Public Use
  Company Number: CTI_01228_2010

PATIENT
  Sex: Female

DRUGS (3)
  1. SPECTRACEF [Suspect]
     Indication: SINUSITIS
     Dosage: (400 MG BID, TWICE DAILY FOR 10 DAYS ORAL)
     Route: 048
  2. DECADRON [Concomitant]
  3. ANTIHISTAMINES [Concomitant]

REACTIONS (2)
  - CLOSTRIDIUM DIFFICILE COLITIS [None]
  - COLITIS [None]
